FAERS Safety Report 11816521 (Version 2)
Quarter: 2015Q4

REPORT INFORMATION
  Report Type: Report from Study
  Country: BR (occurrence: BR)
  Receive Date: 20151210
  Receipt Date: 20151223
  Transmission Date: 20160305
  Serious: Yes (Other)
  Sender: FDA-Public Use
  Company Number: BR-ROCHE-1229804

PATIENT
  Age: 53 Year
  Sex: Female
  Weight: 64.01 kg

DRUGS (15)
  1. ATACAND [Concomitant]
     Active Substance: CANDESARTAN CILEXETIL
     Route: 065
  2. SINGULAIR [Concomitant]
     Active Substance: MONTELUKAST SODIUM
  3. PRELONE [Concomitant]
     Active Substance: PREDNISOLONE
  4. DAXAS [Concomitant]
     Active Substance: ROFLUMILAST
  5. SYMBICORT [Concomitant]
     Active Substance: BUDESONIDE\FORMOTEROL FUMARATE DIHYDRATE
  6. TRILEPTAL [Concomitant]
     Active Substance: OXCARBAZEPINE
  7. SERTRALINE [Concomitant]
     Active Substance: SERTRALINE HYDROCHLORIDE
  8. ATACAND [Concomitant]
     Active Substance: CANDESARTAN CILEXETIL
     Indication: HYPERTENSION
     Dosage: 15 YEARS AGO
     Route: 065
  9. XOLAIR [Suspect]
     Active Substance: OMALIZUMAB
     Indication: ASTHMA
     Dosage: MOST RECENT DOSE ON 17/JUN/2013
     Route: 055
     Dates: start: 20130520
  10. VELIJA [Concomitant]
     Active Substance: DULOXETINE HYDROCHLORIDE
     Route: 065
  11. XOLAIR [Suspect]
     Active Substance: OMALIZUMAB
     Route: 055
     Dates: start: 20130617
  12. SPIRIVA [Concomitant]
     Active Substance: TIOTROPIUM BROMIDE MONOHYDRATE
  13. ATACAND [Concomitant]
     Active Substance: CANDESARTAN CILEXETIL
  14. NEXIUM [Concomitant]
     Active Substance: ESOMEPRAZOLE MAGNESIUM
  15. RIVOTRIL [Concomitant]
     Active Substance: CLONAZEPAM
     Route: 065

REACTIONS (6)
  - Osteoporosis [Unknown]
  - Sjogren^s syndrome [Not Recovered/Not Resolved]
  - Pain in extremity [Not Recovered/Not Resolved]
  - Hypersensitivity [Recovering/Resolving]
  - Cushingoid [Recovering/Resolving]
  - Weight increased [Not Recovered/Not Resolved]

NARRATIVE: CASE EVENT DATE: 201412
